FAERS Safety Report 7606228-1 (Version None)
Quarter: 2011Q3

REPORT INFORMATION
  Report Type: 
  Country: None (occurrence: None)
  Receive Date: 20110713
  Receipt Date: 20110701
  Transmission Date: 20111222
  Serious: No
  Sender: FDA-Public Use
  Company Number: US-BAYER-2011-038368

PATIENT
  Age: 27 Year
  Sex: Female
  Weight: 44.91 kg

DRUGS (3)
  1. ACYCLOVIR [Concomitant]
     Dosage: 400 MG, PRN
     Route: 048
  2. MIRENA [Suspect]
     Indication: CONTRACEPTION
     Dosage: 20 ?G, CONT
     Route: 015
     Dates: start: 20090928
  3. IBUPROFEN [Concomitant]
     Dosage: 200 MG, UNK
     Route: 048

REACTIONS (4)
  - PREGNANCY WITH CONTRACEPTIVE DEVICE [None]
  - MENORRHAGIA [None]
  - OVARIAN ENLARGEMENT [None]
  - ADNEXA UTERI PAIN [None]
